FAERS Safety Report 16073853 (Version 1)
Quarter: 2019Q1

REPORT INFORMATION
  Report Type: Spontaneous
  Country: PT (occurrence: ES)
  Receive Date: 20190314
  Receipt Date: 20190314
  Transmission Date: 20190418
  Serious: Yes (Hospitalization, Other)
  Sender: FDA-Public Use
  Company Number: PT-SUNOVION-2019SUN001062

PATIENT

DRUGS (6)
  1. ZEBINIX [Suspect]
     Active Substance: ESLICARBAZEPINE ACETATE
     Indication: TRIGEMINAL NEURALGIA
     Dosage: 400 MG, 1X / DAY
     Route: 048
     Dates: start: 20180417, end: 20180426
  2. GABAPENTINA [Concomitant]
     Active Substance: GABAPENTIN
     Dosage: UNK
  3. METFORMIN [Concomitant]
     Active Substance: METFORMIN HYDROCHLORIDE
     Dosage: UNK
  4. ALAPANZOL [Concomitant]
     Dosage: UNK
  5. RAMIPRIL. [Concomitant]
     Active Substance: RAMIPRIL
     Dosage: 5 MG, 1X / DAY
  6. ATORVASTATIN [Concomitant]
     Active Substance: ATORVASTATIN
     Dosage: 10 MG, 1X / DAY

REACTIONS (2)
  - Hyponatraemic encephalopathy [Recovered/Resolved]
  - Off label use [Unknown]

NARRATIVE: CASE EVENT DATE: 20180417
